FAERS Safety Report 17048432 (Version 1)
Quarter: 2019Q4

REPORT INFORMATION
  Report Type: Spontaneous
  Country: US (occurrence: US)
  Receive Date: 20191118
  Receipt Date: 20191118
  Transmission Date: 20200122
  Serious: Yes (Hospitalization)
  Sender: FDA-Public Use
  Company Number: None

PATIENT
  Age: 50 Year
  Sex: Female
  Weight: 64.8 kg

DRUGS (1)
  1. GAVILYTE G [Suspect]
     Active Substance: POLYETHYLENE GLYCOL 3350\POTASSIUM CHLORIDE\SODIUM BICARBONATE\SODIUM CHLORIDE\SODIUM SULFATE ANHYDROUS
     Indication: BOWEL PREPARATION
     Dosage: ?          QUANTITY:1 4 LITERS;OTHER FREQUENCY:TAKEN OVER 1 HOUR;?
     Route: 048
     Dates: start: 20191114, end: 20191114

REACTIONS (7)
  - Dyspnoea [None]
  - Urticaria [None]
  - Chills [None]
  - Vomiting [None]
  - Nausea [None]
  - Tremor [None]
  - Pruritus [None]

NARRATIVE: CASE EVENT DATE: 20191114
